FAERS Safety Report 4477089-7 (Version None)
Quarter: 2004Q4

REPORT INFORMATION
  Report Type: 
  Country: None (occurrence: None)
  Receive Date: 20041012
  Receipt Date: 20041001
  Transmission Date: 20050328
  Serious: Yes (Other)
  Sender: FDA-Public Use
  Company Number: 163-20785-04100151

PATIENT
  Sex: 0

DRUGS (2)
  1. THALOMID [Suspect]
     Indication: GLIOBLASTOMA MULTIFORME
     Dosage: 200MG TABELTS QD WITH TITRATE OF 100-200MG /D Q 1-2  W TO 1200 MG/D
  2. RADIATION TREATMENT [Suspect]
     Indication: GLIOBLASTOMA MULTIFORME
     Dosage: TOTAL DOSE OF 60 GY OVER SIX WEEKS

REACTIONS (3)
  - EMBOLISM [None]
  - THROMBOSIS [None]
  - VISION BLURRED [None]
